FAERS Safety Report 19100441 (Version 1)
Quarter: 2021Q2

REPORT INFORMATION
  Report Type: Spontaneous
  Country: US (occurrence: US)
  Receive Date: 20210407
  Receipt Date: 20210407
  Transmission Date: 20210717
  Serious: No
  Sender: FDA-Public Use
  Company Number: US-PTC THERAPEUTICS, INC.-US-2020PTC000199

PATIENT
  Sex: Male
  Weight: 18.91 kg

DRUGS (1)
  1. EMFLAZA [Suspect]
     Active Substance: DEFLAZACORT
     Indication: MUSCULAR DYSTROPHY
     Dosage: 0.5 ML, QD
     Route: 048

REACTIONS (4)
  - Logorrhoea [Unknown]
  - Psychomotor hyperactivity [Unknown]
  - Mood swings [Unknown]
  - Weight increased [Unknown]
